FAERS Safety Report 7197306-2 (Version None)
Quarter: 2010Q4

REPORT INFORMATION
  Report Type: 
  Country: None (occurrence: None)
  Receive Date: 20101227
  Receipt Date: 20101216
  Transmission Date: 20110411
  Serious: Yes (Other)
  Sender: FDA-Public Use
  Company Number: JP-AMGEN-JPNSP2010011098

PATIENT

DRUGS (5)
  1. ENBREL [Suspect]
     Indication: RHEUMATOID ARTHRITIS
     Dosage: 50 MG, WEEKLY
     Route: 058
     Dates: start: 20101027
  2. VOLTAREN [Concomitant]
  3. MUCOSTA [Concomitant]
  4. PREDNISOLONE [Concomitant]
  5. RHEUMATREX [Concomitant]

REACTIONS (2)
  - BLOOD PRESSURE INCREASED [None]
  - HOT FLUSH [None]
